FAERS Safety Report 18083686 (Version 2)
Quarter: 2020Q3

REPORT INFORMATION
  Report Type: Report from Study
  Country: IT (occurrence: IT)
  Receive Date: 20200729
  Receipt Date: 20200925
  Transmission Date: 20201103
  Serious: Yes (Life-Threatening)
  Sender: FDA-Public Use
  Company Number: IT-ACCORD-193240

PATIENT
  Age: 65 Year
  Sex: Female

DRUGS (12)
  1. MIRTAZAPINE. [Concomitant]
     Active Substance: MIRTAZAPINE
  2. DELORAZEPAM [Concomitant]
     Active Substance: DELORAZEPAM
  3. TRIAZOLAM. [Suspect]
     Active Substance: TRIAZOLAM
     Route: 048
     Dates: start: 20200505, end: 20200505
  4. TRITTICO [Concomitant]
     Active Substance: TRAZODONE HYDROCHLORIDE
     Dosage: STRENGTH: 150 MG
  5. SERTRALINE [Concomitant]
     Active Substance: SERTRALINE HYDROCHLORIDE
  6. QUETIAPINE. [Suspect]
     Active Substance: QUETIAPINE
     Route: 048
     Dates: start: 20200505, end: 20200505
  7. DENIBAN [Concomitant]
     Active Substance: AMISULPRIDE
     Dosage: STRENGTH: 50 MG
  8. VALDORM [Concomitant]
     Dosage: STRENGTH: 30 MG
  9. CARBOLITHIUM [Concomitant]
     Active Substance: LITHIUM CARBONATE
     Dosage: STRENGTH:300 MG
  10. GABAPENTIN. [Concomitant]
     Active Substance: GABAPENTIN
  11. MOVICOL [Concomitant]
     Active Substance: POLYETHYLENE GLYCOL 3350\POTASSIUM CHLORIDE\SODIUM BICARBONATE\SODIUM CHLORIDE
  12. CARDURA [Concomitant]
     Active Substance: DOXAZOSIN MESYLATE

REACTIONS (3)
  - Suicide attempt [Unknown]
  - Drug abuse [Unknown]
  - Coma [Unknown]

NARRATIVE: CASE EVENT DATE: 20200505
